FAERS Safety Report 19531137 (Version 3)
Quarter: 2022Q3

REPORT INFORMATION
  Report Type: Spontaneous
  Country: GR (occurrence: GR)
  Receive Date: 20210714
  Receipt Date: 20220912
  Transmission Date: 20221026
  Serious: Yes (Other)
  Sender: FDA-Public Use
  Company Number: GR-CELLTRION HEALTHCARE HUNGARY KFT-2021GR008769

PATIENT
  Age: 40 Year
  Sex: Female

DRUGS (3)
  1. STELARA [Suspect]
     Active Substance: USTEKINUMAB
     Indication: Crohn^s disease
     Route: 058
  2. REMICADE [Suspect]
     Active Substance: INFLIXIMAB
     Indication: Crohn^s disease
     Dosage: POWDER FOR SOLUTION FOR INFUSION
  3. ADALIMUMAB [Suspect]
     Active Substance: ADALIMUMAB
     Indication: Crohn^s disease
     Route: 065

REACTIONS (7)
  - Myelitis [Unknown]
  - Myelitis [Recovering/Resolving]
  - Infestation [Unknown]
  - Disease recurrence [Unknown]
  - Parinaud syndrome [Recovered/Resolved]
  - Leukoencephalopathy [Unknown]
  - Meningitis [Unknown]
